FAERS Safety Report 26053380 (Version 1)
Quarter: 2025Q4

REPORT INFORMATION
  Report Type: Spontaneous
  Country: US (occurrence: None)
  Receive Date: 20251114
  Receipt Date: 20251114
  Transmission Date: 20260118
  Serious: No
  Sender: FDA-CTU
  Company Number: None

PATIENT
  Sex: Female

DRUGS (1)
  1. CAPECITABINE [Suspect]
     Active Substance: CAPECITABINE
     Indication: Breast cancer female
     Dosage: ?1500 MG  ORAL?OTHER FREQUENCY : SEE EVENT;?
     Route: 048
     Dates: start: 20251014

REACTIONS (2)
  - Asthenia [None]
  - Therapy change [None]
